FAERS Safety Report 4508117-8 (Version None)
Quarter: 2004Q4

REPORT INFORMATION
  Report Type: 
  Country: None (occurrence: None)
  Receive Date: 20041123
  Receipt Date: 20031020
  Transmission Date: 20050328
  Serious: No
  Sender: FDA-Public Use
  Company Number: US-GLAXOSMITHKLINE-A0430889A

PATIENT
  Sex: Male

DRUGS (13)
  1. WELLBUTRIN [Suspect]
     Dosage: 200MG TWICE PER DAY
     Route: 048
  2. AMITRIPTYLINE [Concomitant]
  3. FISH OIL [Concomitant]
  4. VITAMIN E [Concomitant]
  5. TOPAMAX [Concomitant]
  6. KCL TAB [Concomitant]
  7. PARAFON FORTE [Concomitant]
  8. CLONAZEPAM [Concomitant]
  9. HYDROCHLOROTHIAZIDE [Concomitant]
  10. DOXAZOSIN [Concomitant]
  11. MINIPRESS [Concomitant]
  12. ACEON [Concomitant]
  13. GLUCOSAMINE [Concomitant]

REACTIONS (2)
  - BLOOD PRESSURE INCREASED [None]
  - INSOMNIA [None]
